FAERS Safety Report 8821435 (Version 1)
Quarter: 2012Q4

REPORT INFORMATION
  Report Type: 
  Country: US (occurrence: US)
  Receive Date: 20121002
  Receipt Date: 20121002
  Transmission Date: 20130627
  Serious: Yes (Hospitalization)
  Sender: FDA-Public Use
  Company Number: US-ELI_LILLY_AND_COMPANY-US201206006839

PATIENT
  Sex: Male

DRUGS (4)
  1. HUMALOG LISPRO [Suspect]
     Indication: DIABETES MELLITUS
     Dosage: 4 u, qd
     Dates: start: 1995
  2. HUMALOG LISPRO [Suspect]
     Dosage: 8 u, bid
     Dates: start: 1995
  3. LANTUS [Concomitant]
     Dosage: 13 u, each evening
  4. ASPIRIN [Concomitant]
     Dosage: UNK, unknown

REACTIONS (5)
  - Infection [Recovered/Resolved]
  - Peripheral arterial occlusive disease [Not Recovered/Not Resolved]
  - Blood glucose increased [Recovered/Resolved]
  - Visual acuity reduced [Not Recovered/Not Resolved]
  - Arthralgia [Unknown]
